FAERS Safety Report 18032508 (Version 2)
Quarter: 2022Q2

REPORT INFORMATION
  Report Type: Other
  Country: TR (occurrence: None)
  Receive Date: 20200716
  Receipt Date: 20220626
  Transmission Date: 20220721
  Serious: No
  Sender: FDA-Public Use
  Company Number: TR-ROCHE-2642232

PATIENT
  Age: 34 Year
  Sex: Female
  Weight: 61 kg

DRUGS (17)
  1. OCRELIZUMAB [Suspect]
     Active Substance: OCRELIZUMAB
     Indication: Primary progressive multiple sclerosis
     Dosage: SUBSEQUENT THERAPY RECEIVED ON: 27/JUN/2019, 09/JUL/2019 AND 08/JAN/2020
     Route: 042
  2. MODIWAKE [Concomitant]
     Route: 048
  3. CIPRALEX [Concomitant]
     Active Substance: ESCITALOPRAM OXALATE
     Indication: Depression
     Route: 048
     Dates: start: 20140313, end: 201404
  4. CIPRALEX [Concomitant]
     Active Substance: ESCITALOPRAM OXALATE
     Route: 048
     Dates: start: 20150320, end: 20151015
  5. CIPRALEX [Concomitant]
     Active Substance: ESCITALOPRAM OXALATE
     Route: 048
     Dates: start: 20151015, end: 20151217
  6. MODAFINIL [Concomitant]
     Active Substance: MODAFINIL
     Route: 048
     Dates: start: 20151015, end: 20151117
  7. AUBAGIO [Concomitant]
     Active Substance: TERIFLUNOMIDE
     Route: 048
     Dates: start: 20160202, end: 20180801
  8. DRAMAMINE [Concomitant]
     Active Substance: DIMENHYDRINATE
     Route: 048
     Dates: start: 20200204, end: 20200204
  9. DRAMAMINE [Concomitant]
     Active Substance: DIMENHYDRINATE
     Route: 048
     Dates: start: 20190627, end: 20190627
  10. DRAMAMINE [Concomitant]
     Active Substance: DIMENHYDRINATE
     Route: 048
     Dates: start: 20190709
  11. DRAMAMINE [Concomitant]
     Active Substance: DIMENHYDRINATE
     Route: 048
     Dates: start: 20200108
  12. ACETAMINOPHEN [Concomitant]
     Active Substance: ACETAMINOPHEN
     Route: 048
     Dates: start: 20190627, end: 20190627
  13. ACETAMINOPHEN [Concomitant]
     Active Substance: ACETAMINOPHEN
     Route: 048
     Dates: start: 20190709, end: 20190709
  14. ACETAMINOPHEN [Concomitant]
     Active Substance: ACETAMINOPHEN
     Route: 048
     Dates: start: 20200108, end: 20200108
  15. PHENIRAMINE [Concomitant]
     Active Substance: PHENIRAMINE
     Route: 042
     Dates: start: 20190627
  16. PHENIRAMINE [Concomitant]
     Active Substance: PHENIRAMINE
     Route: 042
     Dates: start: 20190709
  17. PHENIRAMINE [Concomitant]
     Active Substance: PHENIRAMINE
     Route: 042
     Dates: start: 20200108

REACTIONS (1)
  - Influenza [Recovered/Resolved]

NARRATIVE: CASE EVENT DATE: 20191021
